FAERS Safety Report 5750601-3 (Version None)
Quarter: 2008Q2

REPORT INFORMATION
  Report Type: 
  Country: None (occurrence: None)
  Receive Date: 20080528
  Receipt Date: 20080526
  Transmission Date: 20081010
  Serious: Yes (Hospitalization)
  Sender: FDA-Public Use
  Company Number: PL-BRISTOL-MYERS SQUIBB COMPANY-14205470

PATIENT
  Age: 24 Year
  Sex: Female

DRUGS (2)
  1. ABILIFY [Suspect]
     Indication: SCHIZOPHRENIA
     Dosage: STRENGTH-15MG.
     Route: 048
     Dates: start: 20080504, end: 20080521
  2. PRIDINOL [Concomitant]
     Dosage: 1 DOSAGE FORM = 1 TABLET.
     Dates: start: 20080516

REACTIONS (2)
  - CHILLS [None]
  - TREMOR [None]
